FAERS Safety Report 17928838 (Version 1)
Quarter: 2020Q2

REPORT INFORMATION
  Report Type: Spontaneous
  Country: US (occurrence: US)
  Receive Date: 20200622
  Receipt Date: 20200622
  Transmission Date: 20200714
  Serious: Yes (Life-Threatening, Hospitalization)
  Sender: FDA-Public Use
  Company Number: None

PATIENT
  Age: 65 Year
  Sex: Male
  Weight: 77.11 kg

DRUGS (1)
  1. VANCOMYCIN (VANCOMYCIN 1GM/VIL INJ) [Suspect]
     Active Substance: VANCOMYCIN HYDROCHLORIDE
     Indication: PERIPHERAL SWELLING
     Dosage: ?          OTHER FREQUENCY:UNKNOWN;OTHER ROUTE:IV?
     Dates: start: 20171225, end: 20171227

REACTIONS (3)
  - Cardiac arrest [None]
  - Pulse absent [None]
  - Aspiration [None]

NARRATIVE: CASE EVENT DATE: 20171225
